FAERS Safety Report 7177862-0 (Version None)
Quarter: 2010Q4

REPORT INFORMATION
  Report Type: 
  Country: None (occurrence: None)
  Receive Date: 20101220
  Receipt Date: 20101213
  Transmission Date: 20110411
  Serious: Yes (Hospitalization, Other)
  Sender: FDA-Public Use
  Company Number: FR-BAXTER-2010BH030096

PATIENT
  Age: 67 Year
  Sex: Female

DRUGS (5)
  1. CYCLOPHOSPHAMIDE [Suspect]
     Indication: ANTISYNTHETASE SYNDROME
     Route: 042
     Dates: start: 20080301, end: 20080801
  2. METHOTREXATE [Suspect]
     Indication: ANTISYNTHETASE SYNDROME
     Route: 048
     Dates: start: 20090401, end: 20091001
  3. MABTHERA [Suspect]
     Indication: ANTISYNTHETASE SYNDROME
     Route: 042
     Dates: start: 20091001, end: 20091101
  4. CELLCEPT [Suspect]
     Indication: ANTISYNTHETASE SYNDROME
     Route: 048
     Dates: start: 20081001, end: 20090401
  5. IMUREL [Concomitant]
     Indication: ANTISYNTHETASE SYNDROME
     Route: 065
     Dates: start: 20100804

REACTIONS (1)
  - TUBERCULOSIS [None]
